FAERS Safety Report 8225710-X (Version None)
Quarter: 2012Q1

REPORT INFORMATION
  Report Type: 
  Country: None (occurrence: None)
  Receive Date: 20120321
  Receipt Date: 20120316
  Transmission Date: 20120608
  Serious: Yes (Other)
  Sender: FDA-Public Use
  Company Number: US-FRI-1000023796

PATIENT
  Age: 55 Year
  Sex: Female

DRUGS (8)
  1. VIIBRYD [Suspect]
     Indication: DEPRESSION
     Dosage: 10 MG
     Route: 048
     Dates: start: 20110911, end: 20110917
  2. WELLBUTRIN XL [Concomitant]
     Indication: DEPRESSION
     Route: 048
  3. CLONAZEPAM [Concomitant]
     Indication: GENERALISED ANXIETY DISORDER
     Dosage: 4 MG
     Route: 048
  4. VIIBRYD [Suspect]
     Dosage: 20 MG
     Route: 048
     Dates: start: 20110918, end: 20111226
  5. VIIBRYD [Suspect]
     Dosage: 30 MG
     Route: 048
     Dates: start: 20111227
  6. ZOLPIDEM [Concomitant]
     Indication: INSOMNIA
     Dosage: 10 MG AS NEEDED
     Route: 048
  7. CETIRIZINE [Concomitant]
     Indication: SEASONAL ALLERGY
     Dosage: 10 MG
     Route: 048
  8. SYNTHROID [Concomitant]
     Indication: HYPOTHYROIDISM
     Dosage: 50 MCG

REACTIONS (8)
  - COGNITIVE DISORDER [None]
  - HEADACHE [None]
  - BALANCE DISORDER [None]
  - MUSCLE TWITCHING [None]
  - NAUSEA [None]
  - AMNESIA [None]
  - PARTIAL SEIZURES [None]
  - PARAESTHESIA [None]
